FAERS Safety Report 19112419 (Version 1)
Quarter: 2021Q2

REPORT INFORMATION
  Report Type: Spontaneous
  Country: CA (occurrence: CA)
  Receive Date: 20210408
  Receipt Date: 20210408
  Transmission Date: 20210717
  Serious: Yes (Hospitalization, Other)
  Sender: FDA-Public Use
  Company Number: CA-GLAXOSMITHKLINE-CACH2021AMR017919

PATIENT
  Age: 50 Year
  Sex: Male

DRUGS (3)
  1. ADVIL [Suspect]
     Active Substance: IBUPROFEN
     Indication: PRODUCT USED FOR UNKNOWN INDICATION
     Dosage: 400 MG, TID
     Route: 048
  2. ACETAMINOPHEN. [Concomitant]
     Active Substance: ACETAMINOPHEN
     Indication: PRODUCT USED FOR UNKNOWN INDICATION
     Dosage: UNK
     Route: 065
  3. APO?NAPROXEN [Suspect]
     Active Substance: NAPROXEN
     Indication: PAIN
     Dosage: 500 MG, BID
     Route: 048

REACTIONS (4)
  - Haemoptysis [Unknown]
  - Gastrointestinal haemorrhage [Unknown]
  - Faeces discoloured [Unknown]
  - Fatigue [Unknown]
